FAERS Safety Report 16554835 (Version 1)
Quarter: 2019Q3

REPORT INFORMATION
  Report Type: Spontaneous
  Country: US (occurrence: US)
  Receive Date: 20190529
  Receipt Date: 20190529
  Transmission Date: 20191004
  Serious: Yes (Hospitalization)
  Sender: FDA-Public Use
  Company Number: None

PATIENT
  Age: 58 Year
  Sex: Male

DRUGS (2)
  1. NALTREXONE [Suspect]
     Active Substance: NALTREXONE
     Indication: DRUG DEPENDENCE
     Dosage: ?          OTHER FREQUENCY:UNKNOWN;?
     Route: 041
     Dates: start: 20190329, end: 20190523
  2. NALTREXONE [Suspect]
     Active Substance: NALTREXONE
     Indication: ALCOHOL ABUSE
     Dosage: ?          OTHER FREQUENCY:UNKNOWN;?
     Route: 041
     Dates: start: 20190329, end: 20190523

REACTIONS (3)
  - Injection site pain [None]
  - Embolia cutis medicamentosa [None]
  - Injection site nerve damage [None]

NARRATIVE: CASE EVENT DATE: 20190523
